FAERS Safety Report 21417613 (Version 1)
Quarter: 2022Q4

REPORT INFORMATION
  Report Type: Spontaneous
  Country: DE (occurrence: DE)
  Receive Date: 20221006
  Receipt Date: 20221006
  Transmission Date: 20230113
  Serious: Yes (Hospitalization, Other)
  Sender: FDA-Public Use
  Company Number: DE-BRISTOL-MYERS SQUIBB COMPANY-2022-111593

PATIENT
  Age: 82 Year
  Sex: Male
  Weight: 50 kg

DRUGS (65)
  1. AZACITIDINE [Suspect]
     Active Substance: AZACITIDINE
     Indication: Acute myeloid leukaemia
     Route: 058
     Dates: start: 20220215, end: 20220221
  2. AZACITIDINE [Suspect]
     Active Substance: AZACITIDINE
     Dosage: THE LAST DOSE OF STUDY DRUG PRIOR TO EVENT ONSET WAS ADMINISTERED ON STUDY DAY 42 29 MAR 2022.
     Route: 058
     Dates: start: 20220315, end: 20220321
  3. VENETOCLAX [Suspect]
     Active Substance: VENETOCLAX
     Indication: Acute myeloid leukaemia
     Route: 048
     Dates: start: 20210910, end: 20220404
  4. BISOPROLOL [Concomitant]
     Active Substance: BISOPROLOL
     Dates: start: 202109
  5. VALSARTAN [Concomitant]
     Active Substance: VALSARTAN
     Dates: start: 202111
  6. MOVICOL [Concomitant]
     Active Substance: POLYETHYLENE GLYCOL 3350\POTASSIUM CHLORIDE\SODIUM BICARBONATE\SODIUM CHLORIDE
     Dates: start: 202003
  7. UNSPECIFIED INGREDIENT [Concomitant]
     Active Substance: UNSPECIFIED INGREDIENT
     Dates: start: 202109
  8. POTASSIUM CHLORIDE [Concomitant]
     Active Substance: POTASSIUM CHLORIDE
     Dates: start: 20220208
  9. MAGALDRATE [Concomitant]
     Active Substance: MAGALDRATE
     Dates: start: 20220228
  10. NALOXONE HYDROCHLORIDE\TILIDINE HYDROCHLORIDE [Concomitant]
     Active Substance: NALOXONE HYDROCHLORIDE\TILIDINE HYDROCHLORIDE
     Dates: start: 202112, end: 20220329
  11. NALOXONE HYDROCHLORIDE\TILIDINE HYDROCHLORIDE [Concomitant]
     Active Substance: NALOXONE HYDROCHLORIDE\TILIDINE HYDROCHLORIDE
     Dates: start: 20220330
  12. ZOLPIDEM [Concomitant]
     Active Substance: ZOLPIDEM TARTRATE
     Dates: start: 20220331, end: 20220405
  13. ZOLPIDEM [Concomitant]
     Active Substance: ZOLPIDEM TARTRATE
     Dates: start: 20220210, end: 20220211
  14. ZOLPIDEM [Concomitant]
     Active Substance: ZOLPIDEM TARTRATE
     Dates: start: 20220214, end: 20220218
  15. ZOLPIDEM [Concomitant]
     Active Substance: ZOLPIDEM TARTRATE
     Dates: start: 20220220, end: 20220220
  16. POTASSIUM CARBONATE\POTASSIUM CITRATE [Concomitant]
     Active Substance: POTASSIUM CARBONATE\POTASSIUM CITRATE
     Dates: start: 2020, end: 20220216
  17. POSACONAZOLE [Concomitant]
     Active Substance: POSACONAZOLE
     Dates: start: 202111, end: 20220211
  18. POSACONAZOLE [Concomitant]
     Active Substance: POSACONAZOLE
     Dates: start: 20220212, end: 20220215
  19. PIPERACILLIN SODIUM\TAZOBACTAM SODIUM [Concomitant]
     Active Substance: PIPERACILLIN SODIUM\TAZOBACTAM SODIUM
     Dates: start: 20220207, end: 20220207
  20. PIPERACILLIN SODIUM\TAZOBACTAM SODIUM [Concomitant]
     Active Substance: PIPERACILLIN SODIUM\TAZOBACTAM SODIUM
     Dates: start: 20220208, end: 20220213
  21. PIPERACILLIN SODIUM\TAZOBACTAM SODIUM [Concomitant]
     Active Substance: PIPERACILLIN SODIUM\TAZOBACTAM SODIUM
     Dates: start: 20220214, end: 20220214
  22. PIPERACILLIN SODIUM\TAZOBACTAM SODIUM [Concomitant]
     Active Substance: PIPERACILLIN SODIUM\TAZOBACTAM SODIUM
     Dates: start: 20220315, end: 20220315
  23. PIPERACILLIN SODIUM\TAZOBACTAM SODIUM [Concomitant]
     Active Substance: PIPERACILLIN SODIUM\TAZOBACTAM SODIUM
     Dates: start: 20220316, end: 20220322
  24. PIPERACILLIN SODIUM\TAZOBACTAM SODIUM [Concomitant]
     Active Substance: PIPERACILLIN SODIUM\TAZOBACTAM SODIUM
     Dates: start: 20220323, end: 20220323
  25. PERFALGAN [Concomitant]
     Active Substance: ACETAMINOPHEN
     Dates: start: 20220208, end: 20220209
  26. PERFALGAN [Concomitant]
     Active Substance: ACETAMINOPHEN
     Dates: start: 20220315, end: 20220315
  27. PERFALGAN [Concomitant]
     Active Substance: ACETAMINOPHEN
     Dates: start: 20220316, end: 20220316
  28. KALIUM CHLORATUM STREULI [Concomitant]
     Dates: start: 20220214, end: 20220218
  29. KALIUM CHLORATUM STREULI [Concomitant]
     Dates: start: 20220219, end: 20220220
  30. KALIUM CHLORATUM STREULI [Concomitant]
     Dates: start: 20220219, end: 20220220
  31. KALIUM CHLORATUM STREULI [Concomitant]
     Dates: start: 20220221, end: 20220317
  32. KALIUM CHLORATUM STREULI [Concomitant]
     Dates: start: 20220318, end: 20220319
  33. KALIUM CHLORATUM STREULI [Concomitant]
     Dates: start: 20220322, end: 20220331
  34. KALIUM CHLORATUM STREULI [Concomitant]
     Dates: start: 20220320, end: 20220320
  35. KALIUM CHLORATUM STREULI [Concomitant]
     Dates: start: 20220321, end: 20220321
  36. RINGERS SOLUTION [Concomitant]
     Active Substance: CALCIUM CHLORIDE\POTASSIUM CHLORIDE\SODIUM CHLORIDE
     Dates: start: 20220207, end: 20220207
  37. RINGERS SOLUTION [Concomitant]
     Active Substance: CALCIUM CHLORIDE\POTASSIUM CHLORIDE\SODIUM CHLORIDE
     Dates: start: 20220208, end: 20220208
  38. RINGERS SOLUTION [Concomitant]
     Active Substance: CALCIUM CHLORIDE\POTASSIUM CHLORIDE\SODIUM CHLORIDE
     Dates: start: 20220209, end: 20220214
  39. GRANISETRON [Concomitant]
     Active Substance: GRANISETRON
     Dates: start: 20210215, end: 20220221
  40. GRANISETRON [Concomitant]
     Active Substance: GRANISETRON
     Dates: start: 20220315, end: 20220321
  41. DEXAMETHASONE [Concomitant]
     Active Substance: DEXAMETHASONE
     Dates: start: 20210215, end: 20210221
  42. DEXAMETHASONE [Concomitant]
     Active Substance: DEXAMETHASONE
     Dates: start: 20220315, end: 20220323
  43. HYDROMORPHONE [Concomitant]
     Active Substance: HYDROMORPHONE
     Dates: start: 20210219, end: 20210219
  44. HYDROMORPHONE [Concomitant]
     Active Substance: HYDROMORPHONE
     Dates: start: 20210221, end: 20220308
  45. MELPERONE [Concomitant]
     Active Substance: MELPERONE
     Dates: start: 20220223, end: 20220228
  46. MELPERONE [Concomitant]
     Active Substance: MELPERONE
     Dates: start: 20220302, end: 20220329
  47. MELPERONE [Concomitant]
     Active Substance: MELPERONE
     Dates: start: 20220317, end: 20220317
  48. MELPERONE [Concomitant]
     Active Substance: MELPERONE
     Dates: start: 20220319, end: 20220321
  49. PLATELETS [Concomitant]
     Active Substance: HUMAN PLATELET, ALLOGENIC
     Dates: start: 20220226, end: 20220226
  50. PLATELETS [Concomitant]
     Active Substance: HUMAN PLATELET, ALLOGENIC
     Dates: start: 20220304, end: 20220304
  51. PLATELETS [Concomitant]
     Active Substance: HUMAN PLATELET, ALLOGENIC
     Dates: start: 20220329, end: 20220329
  52. PLATELETS [Concomitant]
     Active Substance: HUMAN PLATELET, ALLOGENIC
     Dates: start: 20220331, end: 20220331
  53. HUMAN RED BLOOD CELL [Concomitant]
     Active Substance: HUMAN RED BLOOD CELL
     Dates: start: 20220301, end: 20220301
  54. HUMAN RED BLOOD CELL [Concomitant]
     Active Substance: HUMAN RED BLOOD CELL
     Dates: start: 20220315, end: 20220316
  55. HUMAN RED BLOOD CELL [Concomitant]
     Active Substance: HUMAN RED BLOOD CELL
     Dates: start: 20220330, end: 20220330
  56. MAGALDRATE [Concomitant]
     Active Substance: MAGALDRATE
     Dates: start: 20220228
  57. EVUSHELD [Concomitant]
     Active Substance: CILGAVIMAB\TIXAGEVIMAB
     Dates: start: 20220308, end: 20220308
  58. ATROVENT [Concomitant]
     Active Substance: IPRATROPIUM BROMIDE
     Dates: start: 20220319, end: 20220322
  59. SULTANOL [Concomitant]
     Active Substance: ALBUTEROL SULFATE
     Dates: start: 20220319, end: 20220322
  60. METAMIZOLE [Concomitant]
     Active Substance: METAMIZOLE
     Dates: start: 20220315, end: 20220315
  61. METAMIZOLE [Concomitant]
     Active Substance: METAMIZOLE
     Dates: start: 20220319, end: 20220321
  62. METAMIZOLE [Concomitant]
     Active Substance: METAMIZOLE
     Dates: start: 20220322, end: 20220322
  63. METAMIZOLE [Concomitant]
     Active Substance: METAMIZOLE
     Dates: start: 20220318, end: 20220318
  64. METAMIZOLE [Concomitant]
     Active Substance: METAMIZOLE
     Dates: start: 20220330, end: 20220330
  65. AMOXICILLIN\CLAVULANATE POTASSIUM [Concomitant]
     Active Substance: AMOXICILLIN\CLAVULANATE POTASSIUM
     Dates: start: 20220323, end: 20220327

REACTIONS (34)
  - Catheter site infection [Recovered/Resolved]
  - Febrile neutropenia [Recovered/Resolved]
  - Thrombocytopenia [Recovered/Resolved]
  - Back pain [Recovered/Resolved]
  - Atypical pneumonia [Recovered/Resolved]
  - Anaemia [Recovered/Resolved]
  - Productive cough [Recovered/Resolved]
  - Product administration interrupted [Recovered/Resolved]
  - Chest pain [Recovered/Resolved]
  - Abdominal pain upper [Recovered/Resolved]
  - Chills [Recovered/Resolved]
  - Asthenia [Not Recovered/Not Resolved]
  - Nausea [Recovered/Resolved]
  - Pain [Recovered/Resolved]
  - General physical health deterioration [Recovered/Resolved]
  - Petechiae [Not Recovered/Not Resolved]
  - Night sweats [Not Recovered/Not Resolved]
  - Sarcopenia [Not Recovered/Not Resolved]
  - Diarrhoea [Recovered/Resolved]
  - Sinusitis [Recovered/Resolved]
  - Bronchitis [Recovered/Resolved]
  - Euthyroid sick syndrome [Recovered/Resolved]
  - Alopecia [Not Recovered/Not Resolved]
  - Sleep disorder [Not Recovered/Not Resolved]
  - Wound haemorrhage [Recovered/Resolved]
  - Vomiting [Recovered/Resolved]
  - Constipation [Recovered/Resolved]
  - Klebsiella infection [Unknown]
  - Staphylococcal infection [Unknown]
  - Candida infection [Unknown]
  - Enterococcal infection [Unknown]
  - Epstein-Barr virus infection [Unknown]
  - Bronchopulmonary aspergillosis [Recovered/Resolved]
  - Localised infection [Unknown]

NARRATIVE: CASE EVENT DATE: 20220217
